FAERS Safety Report 7496763-1 (Version None)
Quarter: 2011Q2

REPORT INFORMATION
  Report Type: 
  Country: None (occurrence: None)
  Receive Date: 20110523
  Receipt Date: 20110517
  Transmission Date: 20111010
  Serious: Yes (Hospitalization)
  Sender: FDA-Public Use
  Company Number: B0717251A

PATIENT
  Sex: Female
  Weight: 101 kg

DRUGS (3)
  1. LAPATINIB [Suspect]
     Indication: BREAST CANCER
     Route: 048
     Dates: start: 20100428, end: 20101213
  2. TRASTUZUMAB [Suspect]
     Indication: BREAST CANCER
     Route: 042
     Dates: start: 20100428, end: 20101111
  3. DOCETAXEL [Suspect]
     Indication: BREAST CANCER
     Dosage: 75MGM2 EVERY 3 WEEKS
     Route: 042
     Dates: start: 20100428, end: 20100707

REACTIONS (1)
  - CARDIAC FAILURE CONGESTIVE [None]
